FAERS Safety Report 17432604 (Version 2)
Quarter: 2020Q2

REPORT INFORMATION
  Report Type: Spontaneous
  Country: JP (occurrence: JP)
  Receive Date: 20200218
  Receipt Date: 20200618
  Transmission Date: 20200713
  Serious: Yes (Other)
  Sender: FDA-Public Use
  Company Number: JP-MTPC-MTPC2020-0043063

PATIENT
  Age: 70 Year
  Sex: Male

DRUGS (1)
  1. RADICUT INJ. 30MG [Suspect]
     Active Substance: EDARAVONE
     Route: 041

REACTIONS (1)
  - Cerebral infarction [Unknown]
